FAERS Safety Report 13998953 (Version 2)
Quarter: 2018Q2

REPORT INFORMATION
  Report Type: Report from Study
  Country: JP (occurrence: JP)
  Receive Date: 20170922
  Receipt Date: 20180403
  Transmission Date: 20180711
  Serious: Yes (Death, Hospitalization)
  Sender: FDA-Public Use
  Company Number: JP-ACTELION-A-CH2016-137105

PATIENT
  Age: 82 Year
  Sex: Female

DRUGS (9)
  1. WARFARIN POTASSIUM [Concomitant]
     Active Substance: WARFARIN POTASSIUM
  2. OPSUMIT [Suspect]
     Active Substance: MACITENTAN
     Dosage: 10 MG, QD
     Route: 048
     Dates: start: 20151225, end: 20160110
  3. PREDNISOLONE. [Concomitant]
     Active Substance: PREDNISOLONE
  4. OXYGEN. [Concomitant]
     Active Substance: OXYGEN
  5. OPSUMIT [Suspect]
     Active Substance: MACITENTAN
     Indication: PULMONARY ARTERIAL HYPERTENSION
     Dosage: 10 MG, QD
     Route: 048
     Dates: start: 20160119, end: 20161019
  6. FUROSEMIDE. [Concomitant]
     Active Substance: FUROSEMIDE
  7. LIMAPROST ALFADEX [Concomitant]
     Active Substance: LIMAPROST
  8. TADALAFIL [Concomitant]
     Active Substance: TADALAFIL
  9. IMURAN [Concomitant]
     Active Substance: AZATHIOPRINE

REACTIONS (7)
  - Oxygen saturation decreased [Recovering/Resolving]
  - White blood cell count decreased [Recovered/Resolved]
  - Pneumonia [Fatal]
  - Pancytopenia [Recovered/Resolved]
  - Red blood cell count decreased [Recovered/Resolved]
  - Pulmonary hypertension [Fatal]
  - Platelet count decreased [Recovered/Resolved]

NARRATIVE: CASE EVENT DATE: 20151225
